FAERS Safety Report 7355184-2 (Version None)
Quarter: 2011Q1

REPORT INFORMATION
  Report Type: 
  Country: None (occurrence: None)
  Receive Date: 20110316
  Receipt Date: 20110307
  Transmission Date: 20110831
  Serious: Yes (Other)
  Sender: FDA-Public Use
  Company Number: US-B.I. PHARMACEUTICALS,INC./RIDGEFIELD-2011-BP-07005BP

PATIENT
  Sex: Male

DRUGS (9)
  1. HYDROCHLOROTHIAZIDE [Suspect]
  2. ATORVASTATIN CALCIUM [Suspect]
  3. FLOMAX [Suspect]
  4. ACETAMINOPHEN [Suspect]
  5. ASPIRIN [Suspect]
  6. COREG [Suspect]
  7. LISINOPRIL [Suspect]
  8. AVODART [Suspect]
     Indication: BENIGN PROSTATIC HYPERPLASIA
     Route: 048
  9. OMEPRAZOLE [Suspect]

REACTIONS (2)
  - DIZZINESS [None]
  - SYNCOPE [None]
